FAERS Safety Report 5255764-4 (Version None)
Quarter: 2007Q1

REPORT INFORMATION
  Report Type: 
  Country: None (occurrence: None)
  Receive Date: 20070301
  Receipt Date: 20070227
  Transmission Date: 20070707
  Serious: Yes (Hospitalization)
  Sender: FDA-Public Use
  Company Number: TCI2007A00853

PATIENT
  Age: 76 Year
  Sex: Male

DRUGS (2)
  1. LANSOPRAZOLE [Suspect]
     Indication: REFLUX OESOPHAGITIS
     Route: 048
     Dates: start: 20070101, end: 20070207
  2. ASPIRIN [Concomitant]

REACTIONS (2)
  - CORONARY ARTERY BYPASS [None]
  - RENAL TUBULAR NECROSIS [None]
